FAERS Safety Report 6895536-8 (Version None)
Quarter: 2010Q3

REPORT INFORMATION
  Report Type: 
  Country: None (occurrence: None)
  Receive Date: 20100802
  Receipt Date: 20100728
  Transmission Date: 20110219
  Serious: Yes (Hospitalization, Other)
  Sender: FDA-Public Use
  Company Number: US-BRISTOL-MYERS SQUIBB COMPANY-15213069

PATIENT
  Age: 53 Year
  Sex: Female

DRUGS (6)
  1. ABILIFY [Suspect]
     Indication: MOOD SWINGS
     Route: 048
     Dates: start: 20100526
  2. ABILIFY [Suspect]
     Indication: DEPRESSION
     Route: 048
     Dates: start: 20100526
  3. LITHIUM [Suspect]
  4. KLONOPIN [Suspect]
     Dosage: 1 DF= 0.5 MG, 1/2TAB.
  5. RESTORIL [Suspect]
     Indication: SLEEP DISORDER
     Dosage: EVERY NIGHT
  6. CELEXA [Suspect]
     Dosage: 1 1/2 TAB

REACTIONS (1)
  - PULMONARY EMBOLISM [None]
